FAERS Safety Report 9251886 (Version 1)
Quarter: 2013Q1

REPORT INFORMATION
  Report Type: Spontaneous
  Country: US (occurrence: None)
  Receive Date: 20130305
  Receipt Date: 20130305
  Transmission Date: 20140127
  Serious: Yes (Other)
  Sender: FDA-Public Use
  Company Number: 163-21880-12091210

PATIENT
  Age: 77 Year
  Sex: Female

DRUGS (1)
  1. REVLIMID [Suspect]
     Indication: LYMPHOMA
     Dosage: 02/18/2011 - TEMPORARILY INTERRUPTED, CAPSULE, 15 MG, EVERY TUES, THURS, SAT, SUN FOR 28 DAYS, PO

REACTIONS (2)
  - Lymphoma [None]
  - Disease recurrence [None]
